FAERS Safety Report 14351008 (Version 2)
Quarter: 2018Q1

REPORT INFORMATION
  Report Type: Report from Study
  Country: US (occurrence: US)
  Receive Date: 20180104
  Receipt Date: 20180129
  Transmission Date: 20180509
  Serious: Yes (Hospitalization, Other)
  Sender: FDA-Public Use
  Company Number: US-BAYER-2017-234984

PATIENT
  Age: 62 Year
  Sex: Male

DRUGS (2)
  1. ADEMPAS [Suspect]
     Active Substance: RIOCIGUAT
     Indication: PULMONARY ARTERIAL HYPERTENSION
     Dosage: 1.0 MG, TID
     Route: 048
     Dates: start: 20171127
  2. ADEMPAS [Suspect]
     Active Substance: RIOCIGUAT
     Indication: PULMONARY ARTERIAL HYPERTENSION
     Dosage: 1.0 MG, TID
     Route: 048
     Dates: start: 20171128

REACTIONS (6)
  - Dyspnoea [None]
  - Surgery [None]
  - Dysuria [None]
  - Gait disturbance [None]
  - Investigation [Recovered/Resolved]
  - Asthenia [None]

NARRATIVE: CASE EVENT DATE: 20171220
